FAERS Safety Report 20488658 (Version 1)
Quarter: 2022Q1

REPORT INFORMATION
  Report Type: Spontaneous
  Country: IN (occurrence: IN)
  Receive Date: 20220218
  Receipt Date: 20220218
  Transmission Date: 20220423
  Serious: Yes (Death, Congenital Anomaly, Other)
  Sender: FDA-Public Use
  Company Number: IN-SUN PHARMACEUTICAL INDUSTRIES LTD-2022R1-327293

PATIENT
  Sex: Female
  Weight: 2.1 kg

DRUGS (1)
  1. GLYBURIDE\METFORMIN [Suspect]
     Active Substance: GLYBURIDE\METFORMIN
     Indication: Diabetes mellitus
     Dosage: 5/400 MILLIGRAM
     Route: 064

REACTIONS (4)
  - Stillbirth [Fatal]
  - Congenital anomaly in offspring [Unknown]
  - Foetal exposure during pregnancy [Unknown]
  - Low birth weight baby [Unknown]
